FAERS Safety Report 6169313-X (Version None)
Quarter: 2009Q2

REPORT INFORMATION
  Report Type: 
  Country: None (occurrence: None)
  Receive Date: 20090424
  Receipt Date: 20090409
  Transmission Date: 20091009
  Serious: Yes (Hospitalization)
  Sender: FDA-Public Use
  Company Number: DSA_33521_2009

PATIENT
  Sex: Male

DRUGS (2)
  1. MONO-TILDIEM (MONO-TILDIEM) (NOT SPECIFIED) [Suspect]
     Indication: DRUG USE FOR UNKNOWN INDICATION
     Dosage: DF ORAL
     Route: 048
     Dates: start: 20090220, end: 20090305
  2. FLUDEX /00340101/ (FLUDEX) (NOT SPECIFIED) [Suspect]
     Indication: DRUG USE FOR UNKNOWN INDICATION
     Dosage: DF ORAL
     Route: 048
     Dates: start: 20090220, end: 20090305

REACTIONS (5)
  - ECZEMA [None]
  - LEUKOCYTOCLASTIC VASCULITIS [None]
  - RASH PAPULAR [None]
  - RENAL FAILURE [None]
  - TOXIC SKIN ERUPTION [None]
